FAERS Safety Report 23893274 (Version 1)
Quarter: 2024Q2

REPORT INFORMATION
  Report Type: Spontaneous
  Country: US (occurrence: None)
  Receive Date: 20240524
  Receipt Date: 20240524
  Transmission Date: 20240716
  Serious: No
  Sender: FDA-Public Use
  Company Number: US-INFO-20240124

PATIENT
  Age: 25 Year
  Sex: Female

DRUGS (4)
  1. ROPIVACAINE [Suspect]
     Active Substance: ROPIVACAINE
     Dosage: (10ML/H)
     Route: 008
     Dates: start: 20240508
  2. FENTANYL [Concomitant]
     Active Substance: FENTANYL\FENTANYL CITRATE
  3. LIDOCAINE [Concomitant]
     Active Substance: LIDOCAINE
     Indication: Epidural test dose
  4. EPINEPHRINE [Concomitant]
     Active Substance: EPINEPHRINE
     Indication: Epidural test dose

REACTIONS (1)
  - Drug ineffective [Unknown]

NARRATIVE: CASE EVENT DATE: 20240509
